FAERS Safety Report 11099147 (Version 3)
Quarter: 2016Q1

REPORT INFORMATION
  Report Type: Spontaneous
  Country: GB (occurrence: GB)
  Receive Date: 20150508
  Receipt Date: 20160125
  Transmission Date: 20160525
  Serious: Yes (Death, Hospitalization, Disabling, Other)
  Sender: FDA-Public Use
  Company Number: GB-TEVA-559888ACC

PATIENT
  Age: 65 Year
  Sex: Male
  Weight: 75 kg

DRUGS (20)
  1. LEVOTHYROXINE. [Concomitant]
     Active Substance: LEVOTHYROXINE
  2. DICLOFENAC [Concomitant]
     Active Substance: DICLOFENAC
  3. LEVEMIR [Concomitant]
     Active Substance: INSULIN DETEMIR
  4. FLUCLOXACILLIN [Concomitant]
     Active Substance: FLUCLOXACILLIN
  5. PREDNISOLONE. [Suspect]
     Active Substance: PREDNISOLONE
     Indication: MYASTHENIA GRAVIS
     Dosage: INITIALLY 80MG ALT DIE, THEN VARIED BETWEEN LOWEST 25MG ALT DIE AND HIGHEST 100MG ALT DIE
     Route: 048
     Dates: start: 19910426, end: 20150314
  6. LEVOMEPROMAZINE [Concomitant]
     Active Substance: LEVOMEPROMAZINE
  7. CLOPIDOGREL [Concomitant]
     Active Substance: CLOPIDOGREL BISULFATE
  8. DIAMORPHINE [Concomitant]
     Active Substance: DIACETYLMORPHINE
  9. FENTANYL. [Concomitant]
     Active Substance: FENTANYL
  10. HYOSCINE [Concomitant]
     Active Substance: SCOPOLAMINE
  11. MIRTAZAPINE. [Concomitant]
     Active Substance: MIRTAZAPINE
  12. NOVORAPID [Concomitant]
     Active Substance: INSULIN ASPART
  13. RAMIPRIL. [Concomitant]
     Active Substance: RAMIPRIL
  14. FOLIC ACID. [Concomitant]
     Active Substance: FOLIC ACID
  15. HYDROXOCOBALAMIN [Concomitant]
     Active Substance: HYDROXOCOBALAMIN
  16. GLICLAZIDE [Concomitant]
     Active Substance: GLICLAZIDE
  17. LANSOPRAZOLE. [Concomitant]
     Active Substance: LANSOPRAZOLE
  18. AZATHIOPRINE. [Suspect]
     Active Substance: AZATHIOPRINE
     Indication: MYASTHENIA GRAVIS
     Dosage: STARTED ON 175MG, 200MG 1992, 250MG 1997, 275MG 2005, 300MG FROM 2009, 250MG IN MONTH BEFORE DEATH.
     Route: 048
     Dates: start: 19910611, end: 20150314
  19. ORAMORPH [Concomitant]
     Active Substance: MORPHINE SULFATE
  20. PYRIDOSTIGMINE BROMIDE. [Concomitant]
     Active Substance: PYRIDOSTIGMINE BROMIDE

REACTIONS (6)
  - Diabetes mellitus [Not Recovered/Not Resolved]
  - Glaucoma [Not Recovered/Not Resolved]
  - Cataract [Recovered/Resolved]
  - Death [Fatal]
  - Osteoporosis [Not Recovered/Not Resolved]
  - Anaemia [Not Recovered/Not Resolved]

NARRATIVE: CASE EVENT DATE: 19931217
